FAERS Safety Report 5060464-X (Version None)
Quarter: 2006Q3

REPORT INFORMATION
  Report Type: 
  Country: None (occurrence: None)
  Receive Date: 20060721
  Receipt Date: 20060721
  Transmission Date: 20061208
  Serious: Yes (Death)
  Sender: FDA-Public Use
  Company Number: None

PATIENT
  Sex: Male
  Weight: 75.7507 kg

DRUGS (6)
  1. OXALIPLATIN, 50MG/ 80MG, SANOFI-SYNTHLABO [Suspect]
     Indication: SMALL CELL LUNG CANCER STAGE UNSPECIFIED
     Dosage: 85MG/M2  Q3W IV
     Route: 042
     Dates: start: 20060621
  2. IRINOTECAN, 20MG/ML, PFIZER [Suspect]
     Indication: SMALL CELL LUNG CANCER STAGE UNSPECIFIED
     Dosage: 150MG/M2  Q3W  IV
     Route: 042
     Dates: start: 20060621
  3. DEXAMETHASONE TAB [Concomitant]
  4. ZOFRAN [Concomitant]
  5. LORTAB [Concomitant]
  6. PHENERGAN HCL [Concomitant]

REACTIONS (1)
  - RESPIRATORY DISTRESS [None]
